FAERS Safety Report 24373707 (Version 1)
Quarter: 2024Q3

REPORT INFORMATION
  Report Type: Spontaneous
  Country: US (occurrence: US)
  Receive Date: 20240927
  Receipt Date: 20240927
  Transmission Date: 20241016
  Serious: No
  Sender: VIVUS
  Company Number: US-VIVUS LLC-2023V1001332

PATIENT
  Age: 37 Year
  Sex: Female
  Weight: 70.37 kg

DRUGS (9)
  1. QSYMIA [Suspect]
     Active Substance: PHENTERMINE HYDROCHLORIDE\TOPIRAMATE
     Indication: Weight decreased
     Route: 048
  2. QSYMIA [Suspect]
     Active Substance: PHENTERMINE HYDROCHLORIDE\TOPIRAMATE
     Indication: Weight decreased
     Route: 048
  3. ETHINYL ESTRADIOL\LEVONORGESTREL [Concomitant]
     Active Substance: ETHINYL ESTRADIOL\LEVONORGESTREL
     Indication: Product used for unknown indication
     Dosage: 1MG/20MCG
     Route: 048
  4. LO LOESTRIN FE [Concomitant]
     Active Substance: ETHINYL ESTRADIOL\NORETHINDRONE ACETATE
     Indication: Product used for unknown indication
     Dosage: 1/20 SAMPLE PACK
     Route: 048
     Dates: start: 202303, end: 202310
  5. KELNOR 1/35 [Concomitant]
     Active Substance: ETHINYL ESTRADIOL\ETHYNODIOL DIACETATE
     Indication: Product used for unknown indication
     Dosage: 1/35
     Route: 048
     Dates: start: 202310, end: 20231211
  6. NORETHINDRONE [Concomitant]
     Active Substance: NORETHINDRONE
     Indication: Product used for unknown indication
     Route: 048
     Dates: start: 20231213
  7. MOTRIN [Concomitant]
     Active Substance: IBUPROFEN
     Indication: Dysmenorrhoea
     Route: 065
  8. MOTRIN [Concomitant]
     Active Substance: IBUPROFEN
     Route: 065
  9. PERCOCET [Concomitant]
     Active Substance: ACETAMINOPHEN\OXYCODONE HYDROCHLORIDE
     Indication: Dysmenorrhoea
     Route: 065

REACTIONS (3)
  - Heavy menstrual bleeding [Recovering/Resolving]
  - Dysmenorrhoea [Recovering/Resolving]
  - Weight decreased [Not Recovered/Not Resolved]

NARRATIVE: CASE EVENT DATE: 20230301
